FAERS Safety Report 8714179 (Version 2)
Quarter: 2013Q1

REPORT INFORMATION
  Report Type: Spontaneous
  Country: US (occurrence: US)
  Receive Date: 20120808
  Receipt Date: 20130108
  Transmission Date: 20140127
  Serious: Yes (Other)
  Sender: FDA-Public Use
  Company Number: CHPA2012US016745

PATIENT
  Age: 65 Year
  Sex: Female

DRUGS (2)
  1. EXCEDRIN EXTRA STRENGTH [Suspect]
     Indication: PAIN
     Dosage: 1/2 DF, UNK
     Route: 048
  2. EXCEDRIN EXTRA STRENGTH [Suspect]
     Dosage: 1 DF, ONCE/SINGLE
     Route: 048

REACTIONS (7)
  - Scleroderma [Not Recovered/Not Resolved]
  - Dermatomyositis [Not Recovered/Not Resolved]
  - Pain [Unknown]
  - Energy increased [Recovered/Resolved]
  - Underdose [Unknown]
  - Wrong technique in drug usage process [Unknown]
  - Incorrect dose administered [Unknown]
